FAERS Safety Report 7982502-4 (Version None)
Quarter: 2011Q4

REPORT INFORMATION
  Report Type: 
  Country: None (occurrence: None)
  Receive Date: 20111215
  Receipt Date: 20111201
  Transmission Date: 20120403
  Serious: Yes (Other)
  Sender: FDA-Public Use
  Company Number: US-ROCHE-1020684

PATIENT
  Sex: Male
  Weight: 75.3 kg

DRUGS (11)
  1. ELOXATIN [Suspect]
     Route: 041
     Dates: start: 20110615, end: 20110615
  2. FLUOROURACIL [Suspect]
     Indication: COLON CANCER
     Route: 041
     Dates: start: 20110506, end: 20110506
  3. ELOXATIN [Suspect]
     Indication: COLON CANCER
     Route: 041
     Dates: start: 20110506, end: 20110506
  4. DEXAMETHASONE [Concomitant]
     Dates: start: 20110506, end: 20110615
  5. LEUCOVORIN CALCIUM [Suspect]
     Route: 042
     Dates: start: 20110615, end: 20110615
  6. ALOXI [Concomitant]
     Dates: start: 20110518, end: 20110615
  7. FLUOROURACIL [Suspect]
     Route: 041
     Dates: start: 20110615, end: 20110615
  8. AVASTIN [Suspect]
     Indication: COLON CANCER
     Route: 042
     Dates: start: 20110506, end: 20110506
  9. AVASTIN [Suspect]
     Route: 042
     Dates: start: 20110615, end: 20110615
  10. LEUCOVORIN CALCIUM [Suspect]
     Indication: COLON CANCER
     Route: 042
     Dates: start: 20110506, end: 20110506
  11. FLUOROURACIL [Suspect]
     Dates: start: 20110506, end: 20110615

REACTIONS (1)
  - BLINDNESS [None]
